FAERS Safety Report 17831782 (Version 1)
Quarter: 2020Q2

REPORT INFORMATION
  Report Type: Spontaneous
  Country: US (occurrence: US)
  Receive Date: 20200528
  Receipt Date: 20200528
  Transmission Date: 20200714
  Serious: No
  Sender: FDA-Public Use
  Company Number: US-ROCHE-2565698

PATIENT
  Age: 66 Year
  Sex: Female
  Weight: 47.22 kg

DRUGS (1)
  1. OCREVUS [Suspect]
     Active Substance: OCRELIZUMAB
     Indication: PROGRESSIVE RELAPSING MULTIPLE SCLEROSIS
     Dosage: 1ST 2 HALF DOSE RECEIVED SO FAR (300MG) ;ONGOING: YES
     Route: 042
     Dates: start: 20191209

REACTIONS (3)
  - Ear pruritus [Recovered/Resolved]
  - Intentional product use issue [Unknown]
  - Erythema [Recovered/Resolved]

NARRATIVE: CASE EVENT DATE: 20191209
